FAERS Safety Report 6880301-8 (Version None)
Quarter: 2010Q3

REPORT INFORMATION
  Report Type: 
  Country: None (occurrence: None)
  Receive Date: 20100728
  Receipt Date: 20100719
  Transmission Date: 20110219
  Serious: Yes (Hospitalization)
  Sender: FDA-Public Use
  Company Number: US-B.I. PHARMACEUTICALS,INC./RIDGEFIELD-2010-BP-08186BP

PATIENT
  Sex: Male

DRUGS (2)
  1. CATAPRES [Suspect]
     Indication: HYPERTENSION
     Dosage: 0.8 MG
     Route: 048
     Dates: start: 20070101
  2. TEKTURNA [Concomitant]
     Indication: HYPERTENSION

REACTIONS (5)
  - BLOOD PRESSURE FLUCTUATION [None]
  - EPISTAXIS [None]
  - HAEMORRHAGE [None]
  - HEADACHE [None]
  - LOSS OF CONSCIOUSNESS [None]
